FAERS Safety Report 10537507 (Version 1)
Quarter: 2014Q4

REPORT INFORMATION
  Report Type: Spontaneous
  Country: US (occurrence: None)
  Receive Date: 20141022
  Receipt Date: 20141022
  Transmission Date: 20150529
  Serious: Yes (Disabling)
  Sender: FDA-Public Use
  Company Number: None

PATIENT
  Age: 84 Year
  Sex: Male
  Weight: 61.24 kg

DRUGS (2)
  1. METRONIDAZOLE 500MG [Suspect]
     Active Substance: METRONIDAZOLE
     Indication: DIVERTICULUM
     Route: 048
     Dates: start: 20141012, end: 20141021
  2. CIPROFLOXACIN HCL [Suspect]
     Active Substance: CIPROFLOXACIN HYDROCHLORIDE
     Indication: DIVERTICULUM
     Route: 048
     Dates: start: 20141012, end: 20141021

REACTIONS (3)
  - Feeling cold [None]
  - Abdominal pain upper [None]
  - Headache [None]

NARRATIVE: CASE EVENT DATE: 20141019
